FAERS Safety Report 25224192 (Version 1)
Quarter: 2025Q2

REPORT INFORMATION
  Report Type: Spontaneous
  Country: TR (occurrence: TR)
  Receive Date: 20250422
  Receipt Date: 20250422
  Transmission Date: 20250716
  Serious: Yes (Other)
  Sender: SANDOZ
  Company Number: TR-SANDOZ-SDZ2024TR010440

PATIENT
  Age: 61 Year
  Sex: Female

DRUGS (1)
  1. CANDESARTAN CILEXETIL\HYDROCHLOROTHIAZIDE [Suspect]
     Active Substance: CANDESARTAN CILEXETIL\HYDROCHLOROTHIAZIDE
     Indication: Hypertension
     Route: 065
     Dates: start: 20230901

REACTIONS (6)
  - Hyphaema [Unknown]
  - Ocular hyperaemia [Not Recovered/Not Resolved]
  - Counterfeit product administered [Unknown]
  - Product colour issue [Unknown]
  - Product dose omission issue [Unknown]
  - Drug ineffective [Unknown]
